FAERS Safety Report 21469847 (Version 1)
Quarter: 2022Q4

REPORT INFORMATION
  Report Type: Spontaneous
  Country: IT (occurrence: None)
  Receive Date: 20221018
  Receipt Date: 20221018
  Transmission Date: 20230113
  Serious: Yes (Hospitalization)
  Sender: FDA-Public Use
  Company Number: IT-ROCHE-3199545

PATIENT
  Age: 54 Year
  Sex: Male
  Weight: 100 kg

DRUGS (11)
  1. RIVOTRIL [Suspect]
     Active Substance: CLONAZEPAM
     Indication: Product used for unknown indication
     Dosage: DROPS 1 VIAL
     Route: 048
     Dates: start: 20220923, end: 20220923
  2. OLANZAPINE [Suspect]
     Active Substance: OLANZAPINE
     Indication: Product used for unknown indication
     Route: 048
     Dates: start: 20220923, end: 20220923
  3. LAMOTRIGINE [Concomitant]
     Active Substance: LAMOTRIGINE
  4. TEGRETOL [Concomitant]
     Active Substance: CARBAMAZEPINE
  5. EZETIMIBE [Concomitant]
     Active Substance: EZETIMIBE
  6. NIFEDIPINE [Concomitant]
     Active Substance: NIFEDIPINE
  7. INSULIN NOS [Concomitant]
     Active Substance: INSULIN NOS
  8. PANTOPRAZOLE [Concomitant]
     Active Substance: PANTOPRAZOLE
  9. METFORMIN [Concomitant]
     Active Substance: METFORMIN HYDROCHLORIDE
  10. ENALAPRIL [Concomitant]
     Active Substance: ENALAPRIL
  11. ATORVASTATIN [Concomitant]
     Active Substance: ATORVASTATIN

REACTIONS (2)
  - Sopor [Recovering/Resolving]
  - Drug abuse [Unknown]

NARRATIVE: CASE EVENT DATE: 20220923
